FAERS Safety Report 13170712 (Version 1)
Quarter: 2017Q1

REPORT INFORMATION
  Report Type: Spontaneous
  Country: US (occurrence: US)
  Receive Date: 20170201
  Receipt Date: 20170201
  Transmission Date: 20170428
  Serious: No
  Sender: FDA-Public Use
  Company Number: PHEH2017US002701

PATIENT
  Sex: Female

DRUGS (1)
  1. VOTRIENT [Suspect]
     Active Substance: PAZOPANIB HYDROCHLORIDE
     Indication: ESSENTIAL HYPERTENSION
     Dosage: 600 MG, QD
     Route: 048
     Dates: start: 20161025

REACTIONS (3)
  - Stomatitis [Unknown]
  - Epistaxis [Unknown]
  - Product use issue [Unknown]
